FAERS Safety Report 8949897 (Version 2)
Quarter: 2013Q1

REPORT INFORMATION
  Report Type: Report from Study
  Country: DE (occurrence: DE)
  Receive Date: 20121206
  Receipt Date: 20130329
  Transmission Date: 20140127
  Serious: Yes (Hospitalization)
  Sender: FDA-Public Use
  Company Number: DE-PFIZER INC-2012095578

PATIENT
  Age: 63 Year
  Sex: Male
  Weight: 68.03 kg

DRUGS (8)
  1. TOFACITINIB CITRATE [Suspect]
     Indication: RHEUMATOID ARTHRITIS
     Dosage: 10 MG, 2X/DAY
     Route: 048
     Dates: start: 20101221, end: 20120413
  2. PREDNISOLONE [Suspect]
     Dosage: 50 MG, 1X/DAY
     Route: 048
     Dates: start: 20120414
  3. METHOTREXATE SODIUM [Concomitant]
     Dosage: 20 MG, WEEKLY
     Route: 058
     Dates: start: 20050608
  4. FOLIC ACID [Concomitant]
     Indication: PROPHYLAXIS
     Dosage: 5 MG, WEEKLY
     Route: 048
     Dates: start: 20100531
  5. ETORICOXIB [Concomitant]
     Indication: RHEUMATOID ARTHRITIS
     Dosage: 90 MG
     Route: 048
     Dates: start: 20090203
  6. IBUPROFEN [Concomitant]
     Indication: RHEUMATOID ARTHRITIS
     Dosage: 400 MG, 4X/DAY
     Route: 048
     Dates: start: 201204
  7. ALENDRONATE SODIUM [Concomitant]
     Indication: OSTEOPOROSIS
     Dosage: 70 MG, WEEKLY
     Route: 048
     Dates: start: 20050701
  8. CALCIUM-DURA VIT D3 POWDER [Concomitant]
     Indication: OSTEOPOROSIS
     Dosage: 500 MG / 400 IU 1X/DAY
     Route: 048
     Dates: start: 20050701

REACTIONS (1)
  - Retinal detachment [Recovered/Resolved]
